FAERS Safety Report 25741043 (Version 1)
Quarter: 2025Q3

REPORT INFORMATION
  Report Type: Spontaneous
  Country: US (occurrence: US)
  Receive Date: 20250829
  Receipt Date: 20250829
  Transmission Date: 20251021
  Serious: No
  Sender: GALPHARM INTERNATIONAL
  Company Number: US-PERRIGO-25US001972

PATIENT
  Sex: Female
  Weight: 129.25 kg

DRUGS (1)
  1. ELLA [Suspect]
     Active Substance: ULIPRISTAL ACETATE
     Indication: Product used for unknown indication
     Route: 048

REACTIONS (2)
  - Uterine cervical pain [Recovered/Resolved]
  - Adnexa uteri pain [Recovered/Resolved]
